FAERS Safety Report 25158523 (Version 3)
Quarter: 2025Q2

REPORT INFORMATION
  Report Type: Spontaneous
  Country: US (occurrence: US)
  Receive Date: 20250404
  Receipt Date: 20250501
  Transmission Date: 20250716
  Serious: No
  Sender: AMGEN
  Company Number: US-AMGEN-USASP2025063656

PATIENT
  Age: 77 Year
  Sex: Female

DRUGS (1)
  1. OTEZLA [Suspect]
     Active Substance: APREMILAST
     Indication: Psoriasis
     Dosage: 30 MILLIGRAM, BID
     Route: 048
     Dates: start: 20250325, end: 2025

REACTIONS (6)
  - Adverse drug reaction [Unknown]
  - Drug ineffective [Unknown]
  - Muscle spasms [Unknown]
  - Sleep disorder due to a general medical condition [Unknown]
  - Throat irritation [Not Recovered/Not Resolved]
  - Cough [Unknown]

NARRATIVE: CASE EVENT DATE: 20250101
